FAERS Safety Report 12578597 (Version 1)
Quarter: 2016Q3

REPORT INFORMATION
  Report Type: Spontaneous
  Country: US (occurrence: None)
  Receive Date: 20160720
  Receipt Date: 20160720
  Transmission Date: 20161109
  Serious: Yes (Hospitalization)
  Sender: FDA-Public Use
  Company Number: None

PATIENT
  Age: 66 Year
  Sex: Male
  Weight: 100.5 kg

DRUGS (1)
  1. HYDRALAZINE [Suspect]
     Active Substance: HYDRALAZINE HYDROCHLORIDE
     Indication: HYPERTENSION
     Route: 048
     Dates: start: 20160222, end: 20160301

REACTIONS (6)
  - Headache [None]
  - Hyperhidrosis [None]
  - Feeling hot [None]
  - Blood pressure increased [None]
  - Chest pain [None]
  - Electrocardiogram abnormal [None]

NARRATIVE: CASE EVENT DATE: 20160229
